FAERS Safety Report 20478156 (Version 2)
Quarter: 2022Q2

REPORT INFORMATION
  Report Type: Spontaneous
  Country: US (occurrence: US)
  Receive Date: 20220216
  Receipt Date: 20220517
  Transmission Date: 20220721
  Serious: Yes (Hospitalization)
  Sender: FDA-Public Use
  Company Number: US-BRISTOL-MYERS SQUIBB COMPANY-BMS-2022-018207

PATIENT
  Age: 62 Year
  Sex: Male

DRUGS (3)
  1. SPRYCEL [Suspect]
     Active Substance: DASATINIB
     Indication: Acute lymphocytic leukaemia
     Dosage: UNK
     Route: 048
     Dates: start: 20220112
  2. SPRYCEL [Suspect]
     Active Substance: DASATINIB
     Dosage: 70 MILLIGRAM DAILY
     Route: 048
     Dates: start: 202201
  3. NIVESTYM [FILGRASTIM] [Concomitant]
     Indication: Acute lymphocytic leukaemia
     Dosage: 300MCG UNDER THE SKIN EVERY EVENING AT 6 PM FOR 14 DAYS EVERY 21 DAYS CYCLE

REACTIONS (2)
  - Adverse event [Unknown]
  - Hospitalisation [Unknown]
